FAERS Safety Report 23648888 (Version 1)
Quarter: 2024Q1

REPORT INFORMATION
  Report Type: Spontaneous
  Country: US (occurrence: None)
  Receive Date: 20240318
  Receipt Date: 20240318
  Transmission Date: 20240410
  Serious: Yes (unspecified)
  Sender: FDA-Public Use
  Company Number: None

PATIENT
  Age: 67 Year
  Sex: Female

DRUGS (1)
  1. INQOVI [Suspect]
     Active Substance: CEDAZURIDINE\DECITABINE
     Dosage: OTHER FREQUENCY : DAYS 1-5 OF 28 DAY;?
     Route: 048

REACTIONS (4)
  - Rash [None]
  - Rash [None]
  - Rash [None]
  - Therapy interrupted [None]
